FAERS Safety Report 10589000 (Version 1)
Quarter: 2014Q4

REPORT INFORMATION
  Report Type: Spontaneous
  Country: GB (occurrence: GB)
  Receive Date: 20141117
  Receipt Date: 20141117
  Transmission Date: 20150529
  Serious: Yes (Hospitalization)
  Sender: FDA-Public Use
  Company Number: PHHY2014GB148135

PATIENT
  Age: 80 Year
  Sex: Male

DRUGS (11)
  1. ATENOLOL. [Concomitant]
     Active Substance: ATENOLOL
  2. METHOTREXATE [Concomitant]
     Active Substance: METHOTREXATE
  3. ADCAL-D3 [Concomitant]
     Active Substance: CALCIUM CARBONATE\CHOLECALCIFEROL
  4. COCODAMOL [Concomitant]
     Active Substance: ACETAMINOPHEN\CODEINE PHOSPHATE
  5. RISEDRONATE [Concomitant]
     Active Substance: RISEDRONATE SODIUM
  6. SOLIFENACIN [Concomitant]
     Active Substance: SOLIFENACIN
  7. OMEPRAZOLE. [Suspect]
     Active Substance: OMEPRAZOLE
     Indication: GASTROOESOPHAGEAL REFLUX DISEASE
     Dosage: 40 MG, BID
     Route: 048
     Dates: end: 20141029
  8. SIMVASTATIN. [Concomitant]
     Active Substance: SIMVASTATIN
  9. AMITRIPTYLINE [Suspect]
     Active Substance: AMITRIPTYLINE
     Dosage: 25 MG, QD (EVERY NIGHT)
     Route: 048
     Dates: end: 20141030
  10. ASPIRIN. [Concomitant]
     Active Substance: ASPIRIN
  11. ACIFOL//FOLIC ACID [Concomitant]
     Active Substance: FOLIC ACID

REACTIONS (2)
  - Malaise [Unknown]
  - Hyponatraemia [Unknown]

NARRATIVE: CASE EVENT DATE: 20141029
